FAERS Safety Report 23546857 (Version 11)
Quarter: 2024Q4

REPORT INFORMATION
  Report Type: Spontaneous
  Country: CA (occurrence: CA)
  Receive Date: 20240221
  Receipt Date: 20241223
  Transmission Date: 20250115
  Serious: Yes (Other)
  Sender: CELLTRION
  Company Number: CA-CELLTRION INC.-2024CA001463

PATIENT

DRUGS (19)
  1. INFLECTRA [Suspect]
     Active Substance: INFLIXIMAB-DYYB
     Indication: Crohn^s disease
     Dosage: W 0, 2, 6 AND Q8
     Route: 042
     Dates: start: 20230717
  2. INFLECTRA [Suspect]
     Active Substance: INFLIXIMAB-DYYB
     Dosage: W 0, 2, 6 AND Q8
     Route: 042
     Dates: start: 20231218
  3. INFLECTRA [Suspect]
     Active Substance: INFLIXIMAB-DYYB
     Dosage: 7.5 MG/KG, 487.5 MG, EVERY 8 WEEKS (1 DF)
     Route: 042
     Dates: start: 20240212
  4. INFLECTRA [Suspect]
     Active Substance: INFLIXIMAB-DYYB
     Dosage: 7.5 MG/KG, 487.5 MG, EVERY 8 WEEKS
     Route: 042
     Dates: start: 20240212
  5. INFLECTRA [Suspect]
     Active Substance: INFLIXIMAB-DYYB
     Dosage: 7.5 MG/KG, EVERY 8 WEEKS
     Route: 042
     Dates: start: 20240408
  6. INFLECTRA [Suspect]
     Active Substance: INFLIXIMAB-DYYB
     Dosage: 490 MG, EVERY 8 WEEKS
     Route: 042
     Dates: start: 20240603
  7. INFLECTRA [Suspect]
     Active Substance: INFLIXIMAB-DYYB
     Dosage: 487.5 MG, EVERY 8 WEEKS
     Route: 042
     Dates: start: 20240730
  8. INFLECTRA [Suspect]
     Active Substance: INFLIXIMAB-DYYB
     Dosage: 7.5 MG/KG, EVERY 8 WEEK (1 DF)
     Route: 042
     Dates: start: 20240926
  9. INFLECTRA [Suspect]
     Active Substance: INFLIXIMAB-DYYB
     Dosage: 7.5 MG/KG, EVERY 4 WEEKS (1 DF)
     Route: 042
     Dates: start: 20241112
  10. INFLECTRA [Suspect]
     Active Substance: INFLIXIMAB-DYYB
     Dosage: 495 MG, 10 WEEKS AND 4 DAYS (7.5 MG/KG, EVERY 4 WEEKS)
     Route: 042
     Dates: start: 20241209
  11. BILASTINE [Concomitant]
     Active Substance: BILASTINE
     Dosage: 20 MG
  12. CALCIUM [Concomitant]
     Active Substance: CALCIUM
     Dosage: 500 MG
  13. CELECOXIB [Concomitant]
     Active Substance: CELECOXIB
     Dosage: 200 MG
  14. BUDESONIDE [Concomitant]
     Active Substance: BUDESONIDE
     Dosage: 1 DF
     Dates: start: 20230620
  15. FLOVENT [Concomitant]
     Active Substance: FLUTICASONE PROPIONATE
     Dosage: 125 UG (MCG)
  16. PURINETHOL [Concomitant]
     Active Substance: MERCAPTOPURINE
     Dosage: 50 MG
  17. ROSUVASTATIN [Concomitant]
     Active Substance: ROSUVASTATIN
     Dosage: 10 MG
  18. ALBUTEROL [Concomitant]
     Active Substance: ALBUTEROL
     Dosage: 100 UG (MCG)
  19. CHOLECALCIFEROL [Concomitant]
     Active Substance: CHOLECALCIFEROL
     Dosage: 10000 IU

REACTIONS (19)
  - Mucous stools [Not Recovered/Not Resolved]
  - Condition aggravated [Recovering/Resolving]
  - Blood pressure fluctuation [Unknown]
  - Erythema [Not Recovered/Not Resolved]
  - Throat tightness [Not Recovered/Not Resolved]
  - Pharyngeal paraesthesia [Recovered/Resolved]
  - Dyspnoea [Not Recovered/Not Resolved]
  - Cough [Not Recovered/Not Resolved]
  - Therapeutic response shortened [Unknown]
  - Drug level decreased [Not Recovered/Not Resolved]
  - Drug specific antibody present [Unknown]
  - Sinusitis [Recovering/Resolving]
  - Dysphonia [Unknown]
  - Rhinorrhoea [Not Recovered/Not Resolved]
  - Defaecation urgency [Not Recovered/Not Resolved]
  - Inappropriate schedule of product administration [Unknown]
  - Off label use [Unknown]
  - Intentional product use issue [Unknown]
  - Incorrect dose administered [Unknown]

NARRATIVE: CASE EVENT DATE: 20240101
